FAERS Safety Report 5646747-0 (Version None)
Quarter: 2008Q1

REPORT INFORMATION
  Report Type: 
  Country: None (occurrence: None)
  Receive Date: 20080303
  Receipt Date: 20080221
  Transmission Date: 20080703
  Serious: Yes (Life-Threatening, Hospitalization, Other)
  Sender: FDA-Public Use
  Company Number: FR-BRISTOL-MYERS SQUIBB COMPANY-14096952

PATIENT
  Age: 81 Year
  Sex: Female

DRUGS (7)
  1. GLUCOPHAGE [Suspect]
     Indication: TYPE 2 DIABETES MELLITUS
     Route: 048
  2. DIAMICRON [Concomitant]
     Indication: TYPE 2 DIABETES MELLITUS
     Route: 048
  3. COVERSYL [Concomitant]
     Indication: CARDIAC FAILURE
     Route: 048
  4. LASILIX [Concomitant]
     Indication: CARDIAC FAILURE
     Route: 048
  5. ISOPTIN [Concomitant]
  6. PREVISCAN [Concomitant]
  7. NEO-MERCAZOLE TAB [Concomitant]

REACTIONS (3)
  - LACTIC ACIDOSIS [None]
  - OVERDOSE [None]
  - RENAL FAILURE ACUTE [None]
